FAERS Safety Report 17539386 (Version 2)
Quarter: 2020Q2

REPORT INFORMATION
  Report Type: Spontaneous
  Country: US (occurrence: US)
  Receive Date: 20200313
  Receipt Date: 20200403
  Transmission Date: 20200713
  Serious: No
  Sender: FDA-Public Use
  Company Number: US-PFIZER INC-2020108269

PATIENT
  Age: 68 Year

DRUGS (1)
  1. XELJANZ XR [Suspect]
     Active Substance: TOFACITINIB CITRATE
     Dosage: 11 MG, 1X/DAY

REACTIONS (6)
  - Arthralgia [Unknown]
  - Nasal congestion [Recovered/Resolved]
  - Hypoacusis [Unknown]
  - White blood cell count decreased [Unknown]
  - Intentional product misuse [Unknown]
  - Immune system disorder [Unknown]
